FAERS Safety Report 16452636 (Version 1)
Quarter: 2019Q2

REPORT INFORMATION
  Report Type: Spontaneous
  Country: US (occurrence: US)
  Receive Date: 20190619
  Receipt Date: 20190619
  Transmission Date: 20190711
  Serious: No
  Sender: FDA-Public Use
  Company Number: US-ROCHE-2171654

PATIENT
  Sex: Female

DRUGS (5)
  1. TOCILIZUMAB. [Suspect]
     Active Substance: TOCILIZUMAB
     Indication: LYMPHOPROLIFERATIVE DISORDER
     Route: 065
     Dates: start: 201706, end: 201803
  2. PREDNISOLONE. [Concomitant]
     Active Substance: PREDNISOLONE
     Route: 065
     Dates: start: 201801, end: 201803
  3. SIROLIMUS. [Concomitant]
     Active Substance: SIROLIMUS
     Route: 065
     Dates: start: 201703, end: 201803
  4. XELJANZ [Concomitant]
     Active Substance: TOFACITINIB CITRATE
     Indication: LYMPHOPROLIFERATIVE DISORDER
     Dosage: QUANTITY NUMBER 60 FOR 30 DAYS
     Route: 048
  5. METHOTREXATE. [Concomitant]
     Active Substance: METHOTREXATE
     Route: 065
     Dates: start: 201703, end: 201803

REACTIONS (2)
  - No adverse event [Unknown]
  - Treatment failure [Unknown]
